FAERS Safety Report 5025158-5 (Version None)
Quarter: 2006Q2

REPORT INFORMATION
  Report Type: 
  Country: None (occurrence: None)
  Receive Date: 20060426
  Receipt Date: 20060125
  Transmission Date: 20061013
  Serious: Yes (Other)
  Sender: FDA-Public Use
  Company Number: 2006014341

PATIENT
  Age: 42 Year
  Sex: Male

DRUGS (4)
  1. LYRICA [Suspect]
     Indication: POST HERPETIC NEURALGIA
     Dosage: (2 IN 1 D), ORAL
     Route: 048
  2. ASPIRIN [Concomitant]
  3. MORPHINE [Concomitant]
  4. ALL OTHER THERAPEUTIC PRODUCTS (ALL OTHER THERAPEUTIC PRODUCTS) [Concomitant]

REACTIONS (3)
  - BLOOD CHLORIDE INCREASED [None]
  - CONTUSION [None]
  - WHITE BLOOD CELL COUNT INCREASED [None]
